FAERS Safety Report 9281018 (Version 1)
Quarter: 2013Q2

REPORT INFORMATION
  Report Type: Spontaneous
  Country: US (occurrence: US)
  Receive Date: 20130509
  Receipt Date: 20130509
  Transmission Date: 20140414
  Serious: Yes (Hospitalization)
  Sender: FDA-Public Use
  Company Number: US-GLAXOSMITHKLINE-A1022348A

PATIENT
  Sex: Male

DRUGS (2)
  1. ADVAIR [Suspect]
     Indication: PRODUCT USED FOR UNKNOWN INDICATION
     Route: 055
  2. LOSARTAN [Concomitant]

REACTIONS (5)
  - Dizziness [Unknown]
  - Chest pain [Unknown]
  - Heart rate increased [Unknown]
  - Blood potassium decreased [Unknown]
  - Myalgia [Unknown]
